FAERS Safety Report 20506228 (Version 1)
Quarter: 2022Q1

REPORT INFORMATION
  Report Type: Spontaneous
  Country: US (occurrence: None)
  Receive Date: 20220222
  Receipt Date: 20220222
  Transmission Date: 20220424
  Serious: Yes (Hospitalization, Disabling)
  Sender: FDA-Public Use
  Company Number: None

PATIENT
  Age: 69 Year
  Sex: Male
  Weight: 60.78 kg

DRUGS (30)
  1. MOXIFLOXACIN HYDROCHLORIDE [Suspect]
     Active Substance: MOXIFLOXACIN HYDROCHLORIDE
     Indication: Nasal congestion
     Dosage: FREQUENCY : DAILY;?
     Route: 048
     Dates: start: 20210918, end: 20210921
  2. MOXIFLOXACIN HYDROCHLORIDE [Suspect]
     Active Substance: MOXIFLOXACIN HYDROCHLORIDE
     Indication: Dyspnoea
  3. ASPIRIN [Concomitant]
     Active Substance: ASPIRIN
  4. BACLOFEN [Concomitant]
     Active Substance: BACLOFEN
  5. FOLIC ACID [Concomitant]
     Active Substance: FOLIC ACID
  6. LISINOPRIL [Concomitant]
     Active Substance: LISINOPRIL
  7. LORATADINE [Concomitant]
     Active Substance: LORATADINE
  8. ANORO ELLIPTA [Concomitant]
     Active Substance: UMECLIDINIUM BROMIDE\VILANTEROL TRIFENATATE
  9. PROAIR HFA [Concomitant]
     Active Substance: ALBUTEROL SULFATE
  10. TRAMADOL [Concomitant]
     Active Substance: TRAMADOL
  11. VITAMIN A [Concomitant]
     Active Substance: VITAMIN A
  12. B-50 COMPLEX [Concomitant]
  13. VITAMIN B12 [Concomitant]
     Active Substance: CYANOCOBALAMIN
  14. VITAMIN C [Concomitant]
     Active Substance: ASCORBIC ACID
  15. VITAMIN D3 [Concomitant]
     Active Substance: CHOLECALCIFEROL
  16. CALCIUM [Concomitant]
     Active Substance: CALCIUM
  17. MAGNESIUM [Concomitant]
     Active Substance: MAGNESIUM
  18. ZINC [Concomitant]
     Active Substance: ZINC
  19. VITAMIN E [Concomitant]
     Active Substance: .ALPHA.-TOCOPHEROL
  20. JWH-018 [Concomitant]
     Active Substance: JWH-018
  21. COENZYME Q 10 [Concomitant]
  22. CURCUMIN/BOSWELLIA [Concomitant]
  23. HAWTHORN EXT [Concomitant]
  24. KRILL OIL [Concomitant]
     Active Substance: DIETARY SUPPLEMENT\KRILL OIL
  25. LEVOCARNITINE [Concomitant]
     Active Substance: LEVOCARNITINE
  26. LYSINE [Concomitant]
     Active Substance: LYSINE
  27. DIMETHYL SULFONE [Concomitant]
     Active Substance: DIMETHYL SULFONE
  28. NATTOKINASE [Concomitant]
     Active Substance: NATTOKINASE
  29. RHODIOLA ROSEA-ROOT [Concomitant]
  30. SERRAPEPTASE [Concomitant]
     Active Substance: SERRAPEPTASE

REACTIONS (8)
  - Abdominal pain upper [None]
  - Back pain [None]
  - Ligament sprain [None]
  - Muscle strength abnormal [None]
  - Asthenia [None]
  - Gait disturbance [None]
  - Product prescribing error [None]
  - Dyspnoea [None]

NARRATIVE: CASE EVENT DATE: 20210921
